FAERS Safety Report 22783617 (Version 2)
Quarter: 2024Q4

REPORT INFORMATION
  Report Type: Spontaneous
  Country: US (occurrence: US)
  Receive Date: 20230803
  Receipt Date: 20241202
  Transmission Date: 20250115
  Serious: Yes (Other)
  Sender: PFIZER
  Company Number: US-PFIZER INC-PV202300134302

PATIENT
  Age: 75 Year
  Sex: Female
  Weight: 68.1 kg

DRUGS (5)
  1. IBRANCE [Suspect]
     Active Substance: PALBOCICLIB
     Indication: Breast cancer female
     Dosage: ONE CAP ONCE DAILY FOR 3 WEEKS ON AND 1 WEEK OFF/TAKE 125 MG PO DAILY FOR 3 WEEKS ON + 1 WEEK OFF.
     Route: 048
     Dates: start: 20180503
  2. FASLODEX [Concomitant]
     Active Substance: FULVESTRANT
     Dosage: UNK UNK, MONTHLY
  3. NEURONTIN [Concomitant]
     Active Substance: GABAPENTIN
     Dosage: 300 MG, 1X/DAY (NIGHTLY)
     Route: 048
  4. ELIQUIS [Concomitant]
     Active Substance: APIXABAN
     Indication: Thrombosis
     Dosage: 5 MG, 2X/DAY
     Route: 048
  5. MEDROL [Concomitant]
     Active Substance: METHYLPREDNISOLONE
     Dosage: TAKE 6 TABLETS ON DAY 1 AS DIRECTED ON PACKAGE AND DECREASE BY 1 TAB EACH DAY FOR A TOTAL OF 6 DAYS

REACTIONS (9)
  - Thrombocytopenia [Unknown]
  - Neutropenia [Unknown]
  - Anaemia [Unknown]
  - Nausea [Recovering/Resolving]
  - Arthritis [Recovering/Resolving]
  - Decreased appetite [Recovered/Resolved]
  - Gastrointestinal infection [Recovered/Resolved]
  - Diarrhoea [Recovered/Resolved]
  - Weight decreased [Recovered/Resolved]

NARRATIVE: CASE EVENT DATE: 20240101
